FAERS Safety Report 4348523-8 (Version None)
Quarter: 2004Q2

REPORT INFORMATION
  Report Type: 
  Country: None (occurrence: None)
  Receive Date: 20040427
  Receipt Date: 20040420
  Transmission Date: 20050107
  Serious: Yes (Hospitalization)
  Sender: FDA-Public Use
  Company Number: PHBS2004CZ05437

PATIENT
  Age: 5 Month
  Sex: Male

DRUGS (2)
  1. ELIDEL [Suspect]
     Indication: DERMATITIS ATOPIC
     Dosage: UNK, BID
     Dates: start: 20040126, end: 20040301
  2. EMOLLIENTS AND PROTECTIVES [Concomitant]

REACTIONS (2)
  - APHTHOUS STOMATITIS [None]
  - ORAL CANDIDIASIS [None]
